FAERS Safety Report 5352104-7 (Version None)
Quarter: 2007Q2

REPORT INFORMATION
  Report Type: 
  Country: None (occurrence: None)
  Receive Date: 20070607
  Receipt Date: 20070529
  Transmission Date: 20071010
  Serious: Yes (Death, Hospitalization)
  Sender: FDA-Public Use
  Company Number: 163-21880-07030552

PATIENT
  Age: 68 Year
  Sex: Female

DRUGS (12)
  1. REVLIMID [Suspect]
     Indication: MYELODYSPLASTIC SYNDROME
     Dosage: 5 MG, 1 IN 1 D, ORAL
     Route: 048
     Dates: start: 20060901, end: 20070103
  2. DACOGEN [Suspect]
     Indication: MYELODYSPLASTIC SYNDROME
     Dates: start: 20070226, end: 20070302
  3. PREDNISONE TAB [Concomitant]
  4. DILTIAZEM CD (DILTIAZEM HYDROCHLORIDE) [Concomitant]
  5. LOVENOX [Concomitant]
  6. COUMADIN [Concomitant]
  7. AMBIEN [Concomitant]
  8. DYAZIDE [Concomitant]
  9. TYLENOL [Concomitant]
  10. LASIX [Concomitant]
  11. DULCOLAX [Concomitant]
  12. POTASSIUM CHLORIDE [Concomitant]

REACTIONS (5)
  - ATRIAL FIBRILLATION [None]
  - DEEP VEIN THROMBOSIS [None]
  - DISEASE PROGRESSION [None]
  - PANCYTOPENIA [None]
  - PROTHROMBIN TIME SHORTENED [None]
